FAERS Safety Report 12584114 (Version 1)
Quarter: 2016Q3

REPORT INFORMATION
  Report Type: Other
  Country: None (occurrence: US)
  Receive Date: 20160722
  Receipt Date: 20160722
  Transmission Date: 20161109
  Serious: Yes (Other)
  Sender: FDA-Public Use
  Company Number: US-GUTHY-RENKER LLC-1055427

PATIENT
  Age: 59 Year
  Sex: Female

DRUGS (2)
  1. MEANINGFUL BEAUTY CINDY CRAWFORD ANTIOXIDANT SPF 20 UVA/UVB [Suspect]
     Active Substance: AVOBENZONE\OCTINOXATE\OCTISALATE\OXYBENZONE
     Indication: PROPHYLAXIS AGAINST SOLAR RADIATION
     Route: 061
     Dates: start: 20160430, end: 20160701
  2. ATIVAN, FENTANYL PATCHES, TRILEPTAL, CLONAZEPAM, DEPAKOTE, PROBIOTICS, [Concomitant]

REACTIONS (2)
  - Seizure [None]
  - Blister [Recovering/Resolving]

NARRATIVE: CASE EVENT DATE: 20160701
